FAERS Safety Report 7437722-4 (Version None)
Quarter: 2011Q2

REPORT INFORMATION
  Report Type: 
  Country: None (occurrence: None)
  Receive Date: 20110426
  Receipt Date: 20110419
  Transmission Date: 20111010
  Serious: Yes (Hospitalization)
  Sender: FDA-Public Use
  Company Number: JP-B.I. PHARMACEUTICALS,INC./RIDGEFIELD-2011-BP-07402NB

PATIENT
  Sex: Female
  Weight: 47 kg

DRUGS (16)
  1. METHYLPREDNISOLONE [Suspect]
     Indication: RHEUMATOID ARTHRITIS
     Dosage: 8 MG
     Route: 048
     Dates: start: 20090901
  2. METHOTREXATE [Suspect]
     Indication: RHEUMATOID ARTHRITIS
     Dosage: 2.5 MG
     Route: 048
     Dates: start: 20090901
  3. PAXIL [Concomitant]
     Indication: DEPRESSION
     Dosage: 20 MG
     Route: 048
     Dates: start: 20090901
  4. MICARDIS [Suspect]
     Dosage: 80 MG
     Route: 048
     Dates: start: 20110209
  5. LIPOZART [Concomitant]
     Indication: HYPERLIPIDAEMIA
     Dosage: 10 MG
     Route: 048
     Dates: start: 20090901
  6. LEBENIN [Concomitant]
     Indication: INTESTINAL FUNCTIONAL DISORDER
     Dosage: 3 G
     Route: 048
     Dates: start: 20090901
  7. ETICALM [Concomitant]
     Indication: DEPRESSION
     Dosage: 1 MG
     Route: 048
     Dates: start: 20090901
  8. MICAMLO COMBINATION [Suspect]
     Indication: HYPERTENSION
     Dosage: 1DF
     Route: 048
     Dates: start: 20101105, end: 20110126
  9. PROGRAF [Suspect]
     Indication: RHEUMATOID ARTHRITIS
     Dosage: 1 MG
     Route: 048
     Dates: start: 20090901
  10. CALFINA [Concomitant]
     Indication: OSTEOPOROSIS
     Dosage: 0.5 MG
     Route: 048
     Dates: start: 20090901
  11. ISONIAZID [Concomitant]
     Indication: ANTIBIOTIC PROPHYLAXIS
     Dosage: 200 MG
     Route: 048
     Dates: start: 20090901
  12. BENET [Concomitant]
     Indication: OSTEOPOROSIS
     Dosage: 17.5 MG
     Route: 048
     Dates: start: 20090901
  13. MAGMITT [Concomitant]
     Indication: GASTRITIS PROPHYLAXIS
     Dosage: 500 MG
     Route: 048
     Dates: start: 20090901
  14. CLARITH [Concomitant]
     Indication: BRONCHITIS CHRONIC
     Dosage: 400 MG
     Route: 048
     Dates: start: 20110209
  15. SALFIDINE-EN [Concomitant]
     Indication: RHEUMATOID ARTHRITIS
     Dosage: 1000 MG
     Route: 048
     Dates: start: 20090901
  16. MICARDIS [Suspect]
     Indication: HYPERTENSION
     Dosage: 40 MG
     Route: 048
     Dates: start: 20101212

REACTIONS (6)
  - BLOOD GLUCOSE INCREASED [None]
  - PNEUMONIA [None]
  - WEIGHT DECREASED [None]
  - FALL [None]
  - SUBDURAL HAEMATOMA [None]
  - POLYURIA [None]
